FAERS Safety Report 15554285 (Version 3)
Quarter: 2018Q4

REPORT INFORMATION
  Report Type: Spontaneous
  Country: US (occurrence: US)
  Receive Date: 20181026
  Receipt Date: 20181204
  Transmission Date: 20190205
  Serious: No
  Sender: FDA-Public Use
  Company Number: US-PFIZER INC-2018433222

PATIENT
  Age: 81 Year
  Sex: Female
  Weight: 92.8 kg

DRUGS (2)
  1. NEURONTIN [Suspect]
     Active Substance: GABAPENTIN
     Dosage: UNK
     Route: 048
     Dates: start: 201809, end: 201810
  2. NEURONTIN [Suspect]
     Active Substance: GABAPENTIN
     Indication: NEUROPATHY PERIPHERAL
     Dosage: 100-300, 3X/DAY
     Route: 048
     Dates: start: 201809, end: 201809

REACTIONS (4)
  - Nausea [Recovered/Resolved]
  - Sedation [Recovered/Resolved]
  - Drug ineffective for unapproved indication [Unknown]
  - Fatigue [Recovered/Resolved]

NARRATIVE: CASE EVENT DATE: 2018
